FAERS Safety Report 23466693 (Version 1)
Quarter: 2024Q1

REPORT INFORMATION
  Report Type: Spontaneous
  Country: US (occurrence: US)
  Receive Date: 20240201
  Receipt Date: 20240201
  Transmission Date: 20240409
  Serious: Yes (Hospitalization)
  Sender: FDA-Public Use
  Company Number: US-UCBSA-2023053457

PATIENT
  Sex: Female
  Weight: 89.796 kg

DRUGS (1)
  1. CIMZIA [Suspect]
     Active Substance: CERTOLIZUMAB PEGOL
     Indication: Rheumatoid arthritis
     Dosage: 400 MILLIGRAM, EV 4 WEEKS
     Route: 058
     Dates: start: 202306

REACTIONS (4)
  - Joint injury [Unknown]
  - Fall [Unknown]
  - Nasopharyngitis [Unknown]
  - Illness [Unknown]

NARRATIVE: CASE EVENT DATE: 20230101
